FAERS Safety Report 8031867-6 (Version None)
Quarter: 2012Q1

REPORT INFORMATION
  Report Type: 
  Country: None (occurrence: None)
  Receive Date: 20120109
  Receipt Date: 20120105
  Transmission Date: 20120608
  Serious: Yes (Life-Threatening, Other)
  Sender: FDA-Public Use
  Company Number: US-ASTRAZENECA-2012SE00927

PATIENT
  Age: 50 Year
  Sex: Male
  Weight: 88.5 kg

DRUGS (3)
  1. LITHIUM [Concomitant]
  2. SEROQUEL [Suspect]
     Indication: BIPOLAR DISORDER
     Route: 048
  3. CLONIPINE [Concomitant]
     Indication: DISEASE RECURRENCE

REACTIONS (4)
  - SUICIDE ATTEMPT [None]
  - HYPOAESTHESIA [None]
  - RADIAL NERVE PALSY [None]
  - INSOMNIA [None]
